FAERS Safety Report 12470064 (Version 1)
Quarter: 2016Q2

REPORT INFORMATION
  Report Type: Spontaneous
  Country: FR (occurrence: FR)
  Receive Date: 20160616
  Receipt Date: 20160616
  Transmission Date: 20160815
  Serious: Yes (Hospitalization)
  Sender: FDA-Public Use
  Company Number: PHHY2016FR082522

PATIENT
  Age: 36 Year
  Sex: Female
  Weight: 49 kg

DRUGS (1)
  1. GILENYA [Suspect]
     Active Substance: FINGOLIMOD HYDROCHLORIDE
     Indication: MULTIPLE SCLEROSIS
     Dosage: 1 DF, QD
     Route: 048
     Dates: start: 201404

REACTIONS (2)
  - Cervix carcinoma stage 0 [Recovered/Resolved with Sequelae]
  - Cervical conisation [Recovered/Resolved with Sequelae]

NARRATIVE: CASE EVENT DATE: 201604
